FAERS Safety Report 6392554-3 (Version None)
Quarter: 2009Q4

REPORT INFORMATION
  Report Type: 
  Country: None (occurrence: None)
  Receive Date: 20091007
  Receipt Date: 20090928
  Transmission Date: 20100525
  Serious: Yes (Disabling)
  Sender: FDA-Public Use
  Company Number: NL-AMGEN-US353554

PATIENT
  Age: 72 Year
  Sex: Male

DRUGS (4)
  1. ENBREL [Suspect]
     Indication: PSORIATIC ARTHROPATHY
     Route: 058
     Dates: start: 20080818, end: 20090601
  2. TRIAMTERENE AND HYDROCHLOROTHIAZIDE [Concomitant]
     Dosage: UNKNOWN
  3. METHOTREXATE [Concomitant]
     Indication: PSORIATIC ARTHROPATHY
     Dosage: 15 MG
     Route: 048
     Dates: start: 20010101, end: 20060601
  4. METHOTREXATE [Concomitant]
     Dosage: 15 MG
     Dates: start: 20090301

REACTIONS (2)
  - ACNE [None]
  - CONDITION AGGRAVATED [None]
